FAERS Safety Report 25277600 (Version 1)
Quarter: 2025Q2

REPORT INFORMATION
  Report Type: Spontaneous
  Country: US (occurrence: US)
  Receive Date: 20250507
  Receipt Date: 20250507
  Transmission Date: 20250716
  Serious: No
  Sender: HIKMA
  Company Number: HIKM2405649

PATIENT
  Age: 82 Year
  Sex: Male

DRUGS (1)
  1. AMIKACIN [Suspect]
     Active Substance: AMIKACIN
     Indication: Product used for unknown indication
     Route: 065

REACTIONS (4)
  - Haemoglobin increased [Unknown]
  - Weight increased [Unknown]
  - Cough [Unknown]
  - Head injury [Unknown]
